FAERS Safety Report 10334212 (Version 1)
Quarter: 2014Q3

REPORT INFORMATION
  Report Type: Spontaneous
  Country: ES (occurrence: ES)
  Receive Date: 20140723
  Receipt Date: 20140723
  Transmission Date: 20150326
  Serious: Yes (Hospitalization, Other)
  Sender: FDA-Public Use
  Company Number: ES-ASTRAZENECA-2014SE52036

PATIENT
  Age: 71 Year
  Sex: Male

DRUGS (2)
  1. VANDETANIB. [Suspect]
     Active Substance: VANDETANIB
     Indication: THYROID CANCER STAGE IV
     Route: 048
     Dates: start: 20140325, end: 20140623
  2. ANTIEPILEPTIC MEDICATION [Concomitant]

REACTIONS (8)
  - Encephalomalacia [Unknown]
  - Encephalopathy [Unknown]
  - Gait disturbance [Recovering/Resolving]
  - Headache [Recovered/Resolved]
  - Epilepsy [Recovered/Resolved]
  - Bradyphrenia [Unknown]
  - Metastases to central nervous system [Unknown]
  - Cerebral small vessel ischaemic disease [Unknown]

NARRATIVE: CASE EVENT DATE: 201404
